APPROVED DRUG PRODUCT: RANITIDINE HYDROCHLORIDE
Active Ingredient: RANITIDINE HYDROCHLORIDE
Strength: EQ 15MG BASE/ML
Dosage Form/Route: SYRUP;ORAL
Application: A091078 | Product #001
Applicant: EPIC PHARMA LLC
Approved: Mar 22, 2011 | RLD: No | RS: No | Type: DISCN